FAERS Safety Report 23759806 (Version 1)
Quarter: 2024Q2

REPORT INFORMATION
  Report Type: Spontaneous
  Country: US (occurrence: US)
  Receive Date: 20240419
  Receipt Date: 20240419
  Transmission Date: 20240716
  Serious: No
  Sender: FDA-Public Use
  Company Number: US-BRISTOL-MYERS SQUIBB COMPANY-2024-059337

PATIENT
  Age: 75 Year
  Sex: Female

DRUGS (2)
  1. ORENCIA [Suspect]
     Active Substance: ABATACEPT
     Indication: Rheumatoid arthritis
     Route: 042
     Dates: start: 202403
  2. ORENCIA [Suspect]
     Active Substance: ABATACEPT

REACTIONS (3)
  - Insurance issue [Unknown]
  - Therapy interrupted [Unknown]
  - Rheumatoid arthritis [Unknown]
